FAERS Safety Report 6121938-3 (Version None)
Quarter: 2009Q1

REPORT INFORMATION
  Report Type: 
  Country: None (occurrence: None)
  Receive Date: 20090317
  Receipt Date: 20090305
  Transmission Date: 20090719
  Serious: Yes (Other)
  Sender: FDA-Public Use
  Company Number: SG-MERCK-0903SGP00003

PATIENT
  Age: 16 Year
  Sex: Female

DRUGS (2)
  1. MEVACOR [Suspect]
     Indication: HYPERCHOLESTEROLAEMIA
     Route: 048
  2. ATORVASTATIN [Concomitant]
     Indication: HYPERCHOLESTEROLAEMIA
     Route: 065

REACTIONS (6)
  - DRUG INEFFECTIVE [None]
  - FOCAL SEGMENTAL GLOMERULOSCLEROSIS [None]
  - MYOPATHY [None]
  - NEPHROSCLEROSIS [None]
  - RENAL FAILURE CHRONIC [None]
  - RHABDOMYOLYSIS [None]
